FAERS Safety Report 16536688 (Version 1)
Quarter: 2019Q3

REPORT INFORMATION
  Report Type: Spontaneous
  Country: US (occurrence: US)
  Receive Date: 20190706
  Receipt Date: 20190706
  Transmission Date: 20191004
  Serious: No
  Sender: FDA-Public Use
  Company Number: US-AUROBINDO-AUR-APL-2019-031202

PATIENT

DRUGS (2)
  1. GUAIFENESINANDDEXTROMETHORPHANHYDROBROMIDEEXTENDED-RELEASETABLET (OTC) [Suspect]
     Active Substance: DEXTROMETHORPHAN HYDROBROMIDE\GUAIFENESIN
     Indication: COUGH
     Dosage: TOOK 1 TABLET
     Route: 065
     Dates: start: 20190522
  2. GUAIFENESINANDDEXTROMETHORPHANHYDROBROMIDEEXTENDED-RELEASETABLET (OTC) [Suspect]
     Active Substance: DEXTROMETHORPHAN HYDROBROMIDE\GUAIFENESIN
     Indication: SECRETION DISCHARGE

REACTIONS (3)
  - Heart rate increased [Unknown]
  - Nervousness [Unknown]
  - Anxiety [Unknown]

NARRATIVE: CASE EVENT DATE: 20190523
